FAERS Safety Report 15664460 (Version 17)
Quarter: 2023Q1

REPORT INFORMATION
  Report Type: Spontaneous
  Country: BR (occurrence: BR)
  Receive Date: 20181128
  Receipt Date: 20230314
  Transmission Date: 20230418
  Serious: Yes (Hospitalization)
  Sender: FDA-Public Use
  Company Number: BR-GLAXOSMITHKLINE-BR2016GSK001620

PATIENT

DRUGS (6)
  1. BENLYSTA [Suspect]
     Active Substance: BELIMUMAB
     Indication: Systemic lupus erythematosus
     Dosage: UNK (6 VIALS)
     Dates: start: 20150903
  2. AMILOXATE\AVOBENZONE\ENZACAMENE\OCTINOXATE\TITANIUM DIOXIDE\ZINC OXIDE [Suspect]
     Active Substance: AMILOXATE\AVOBENZONE\ENZACAMENE\OCTINOXATE\TITANIUM DIOXIDE\ZINC OXIDE
     Indication: Prophylaxis
     Dosage: UNK
  3. IBUPROFEN [Suspect]
     Active Substance: IBUPROFEN
     Indication: Product used for unknown indication
     Dosage: UNK
  4. HYDROXYCHLOROQUINE SULFATE [Concomitant]
     Active Substance: HYDROXYCHLOROQUINE SULFATE
     Indication: Product used for unknown indication
     Dosage: UNK
  5. PREDNISONE [Concomitant]
     Active Substance: PREDNISONE
     Indication: Product used for unknown indication
     Dosage: UNK
  6. OCTISALATE AND OCTOCRYLENE [Suspect]
     Active Substance: OCTISALATE\OCTOCRYLENE

REACTIONS (21)
  - Heart rate increased [Recovered/Resolved]
  - Skin disorder [Unknown]
  - Pharyngitis [Unknown]
  - Weight decreased [Unknown]
  - Hypersensitivity [Recovering/Resolving]
  - Influenza like illness [Recovering/Resolving]
  - Malaise [Unknown]
  - Pyrexia [Unknown]
  - Surgery [Unknown]
  - Premature baby [Unknown]
  - Gastrointestinal infection [Recovered/Resolved]
  - Abdominal pain [Recovered/Resolved]
  - Bowel movement irregularity [Recovered/Resolved]
  - Underdose [Unknown]
  - Pharyngeal inflammation [Unknown]
  - Illness [Unknown]
  - Exposure during pregnancy [Recovered/Resolved]
  - Live birth [Unknown]
  - Inappropriate schedule of product administration [Not Recovered/Not Resolved]
  - Product dose omission issue [Unknown]
  - Circumstance or information capable of leading to medication error [Unknown]

NARRATIVE: CASE EVENT DATE: 20181114
